FAERS Safety Report 6707587-4 (Version None)
Quarter: 2010Q2

REPORT INFORMATION
  Report Type: 
  Country: None (occurrence: None)
  Receive Date: 20100503
  Receipt Date: 20100419
  Transmission Date: 20101027
  Serious: Yes (Hospitalization)
  Sender: FDA-Public Use
  Company Number: SA-MYLANLABS-2010S1006598

PATIENT
  Age: 63 Year
  Sex: Male

DRUGS (4)
  1. ETHAMBUTOL HYDROCHLORIDE [Suspect]
     Indication: BONE TUBERCULOSIS
     Route: 065
     Dates: start: 20030101
  2. PYRAZINAMIDE [Suspect]
     Indication: BONE TUBERCULOSIS
     Route: 065
     Dates: start: 20030101
  3. CIPROFLOXACIN [Suspect]
     Indication: BONE TUBERCULOSIS
     Route: 065
     Dates: start: 20030101
  4. ISONIAZID [Suspect]
     Indication: BONE TUBERCULOSIS
     Route: 065

REACTIONS (3)
  - BONE TUBERCULOSIS [None]
  - PARADOXICAL DRUG REACTION [None]
  - SPONDYLITIS [None]
